FAERS Safety Report 6326907-6 (Version None)
Quarter: 2009Q3

REPORT INFORMATION
  Report Type: 
  Country: None (occurrence: None)
  Receive Date: 20090825
  Receipt Date: 20090813
  Transmission Date: 20100115
  Serious: Yes (Death, Hospitalization)
  Sender: FDA-Public Use
  Company Number: BE-PFIZER INC-2009239163

PATIENT
  Age: 68 Year

DRUGS (1)
  1. SUTENT [Suspect]
     Indication: METASTATIC RENAL CELL CARCINOMA
     Dosage: 50 MG, 1X/DAY
     Route: 048
     Dates: start: 20090630, end: 20090712

REACTIONS (3)
  - LACTIC ACIDOSIS [None]
  - MULTI-ORGAN FAILURE [None]
  - PERITONITIS [None]
